FAERS Safety Report 5313052-1 (Version None)
Quarter: 2007Q1

REPORT INFORMATION
  Report Type: 
  Country: None (occurrence: None)
  Receive Date: 20070201
  Receipt Date: 20061010
  Transmission Date: 20070707
  Serious: No
  Sender: FDA-Public Use
  Company Number: VNL_0241_2006

PATIENT
  Sex: Male

DRUGS (1)
  1. APOKYN [Suspect]
     Dosage: DF
     Dates: start: 20050401

REACTIONS (3)
  - CONTUSION [None]
  - FALL [None]
  - ORTHOSTATIC HYPOTENSION [None]
